FAERS Safety Report 11111988 (Version 1)
Quarter: 2015Q2

REPORT INFORMATION
  Report Type: Spontaneous
  Country: US (occurrence: None)
  Receive Date: 20150513
  Receipt Date: 20150513
  Transmission Date: 20150821
  Serious: Yes (Other)
  Sender: FDA-Public Use
  Company Number: None

PATIENT
  Age: 58 Year
  Sex: Female
  Weight: 140.62 kg

DRUGS (5)
  1. NIACIN ER [Suspect]
     Active Substance: NIACIN
     Indication: BLOOD CHOLESTEROL ABNORMAL
     Dosage: 2 PILLS, AT BEDTIME, TAKEN BY MOUTH
     Route: 048
  2. PROTONIX [Concomitant]
     Active Substance: PANTOPRAZOLE SODIUM
  3. DIOVAN [Concomitant]
     Active Substance: VALSARTAN
  4. FUROSIMIDE [Concomitant]
     Active Substance: FUROSEMIDE
  5. NAPROXIN [Concomitant]
     Active Substance: NAPROXEN

REACTIONS (1)
  - Liver disorder [None]

NARRATIVE: CASE EVENT DATE: 20150417
